FAERS Safety Report 26107022 (Version 1)
Quarter: 2025Q4

REPORT INFORMATION
  Report Type: Spontaneous
  Country: EU (occurrence: EU)
  Receive Date: 20251201
  Receipt Date: 20251201
  Transmission Date: 20260118
  Serious: Yes (Congenital Anomaly)
  Sender: ABBVIE
  Company Number: EU-ABBVIE-6570267

PATIENT
  Sex: Male

DRUGS (2)
  1. RISANKIZUMAB [Suspect]
     Active Substance: RISANKIZUMAB
     Indication: Exposure via body fluid
     Route: 064
  2. RISANKIZUMAB [Suspect]
     Active Substance: RISANKIZUMAB
     Route: 050

REACTIONS (3)
  - Gastrointestinal disorder congenital [Unknown]
  - Paternal exposure during pregnancy [Unknown]
  - Foetal exposure during pregnancy [Unknown]
